FAERS Safety Report 11261060 (Version 1)
Quarter: 2015Q3

REPORT INFORMATION
  Report Type: Spontaneous
  Country: US (occurrence: US)
  Receive Date: 20150710
  Receipt Date: 20150710
  Transmission Date: 20151125
  Serious: No
  Sender: FDA-Public Use
  Company Number: US-PURDUE-USA-2015-0120735

PATIENT
  Sex: Female

DRUGS (4)
  1. RITUXAN [Concomitant]
     Active Substance: RITUXIMAB
     Indication: RHEUMATOID ARTHRITIS
     Route: 040
  2. BUTRANS [Suspect]
     Active Substance: BUPRENORPHINE
     Indication: PAIN IN EXTREMITY
  3. BUTRANS [Suspect]
     Active Substance: BUPRENORPHINE
     Indication: MUSCULOSKELETAL PAIN
     Dosage: 10 MCG/HR, WEEKLY
     Route: 062
     Dates: start: 20150129
  4. XANAX [Concomitant]
     Active Substance: ALPRAZOLAM
     Indication: PRODUCT USED FOR UNKNOWN INDICATION
     Dosage: 4 MG, DAILY
     Route: 048

REACTIONS (3)
  - Inadequate analgesia [Unknown]
  - Dizziness [Recovered/Resolved]
  - Pain [Unknown]
